FAERS Safety Report 4678843-9 (Version None)
Quarter: 2005Q2

REPORT INFORMATION
  Report Type: 
  Country: None (occurrence: None)
  Receive Date: 20050531
  Receipt Date: 20050513
  Transmission Date: 20051028
  Serious: Yes (Death)
  Sender: FDA-Public Use
  Company Number: 1821

PATIENT
  Sex: Male

DRUGS (1)
  1. AVINZA [Suspect]
     Indication: PAIN

REACTIONS (2)
  - INTENTIONAL MISUSE [None]
  - RESPIRATORY DEPRESSION [None]
